FAERS Safety Report 5159062-9 (Version None)
Quarter: 2006Q4

REPORT INFORMATION
  Report Type: 
  Country: None (occurrence: None)
  Receive Date: 20061117
  Receipt Date: 20061109
  Transmission Date: 20070319
  Serious: Yes (Hospitalization)
  Sender: FDA-Public Use
  Company Number: 2006BI016358

PATIENT
  Age: 49 Year
  Sex: Female

DRUGS (1)
  1. AVONEX [Suspect]
     Indication: MULTIPLE SCLEROSIS
     Dosage: 30 UG; QW; IM
     Route: 030

REACTIONS (6)
  - COLLAPSE OF LUNG [None]
  - CONTUSION [None]
  - FALL [None]
  - LIGAMENT RUPTURE [None]
  - MUSCULOSKELETAL PAIN [None]
  - RIB FRACTURE [None]
